FAERS Safety Report 10967897 (Version 1)
Quarter: 2015Q1

REPORT INFORMATION
  Report Type: Spontaneous
  Country: US (occurrence: None)
  Receive Date: 20150226
  Receipt Date: 20150226
  Transmission Date: 20150721
  Serious: No
  Sender: FDA-Public Use
  Company Number: TPA2010A01950

PATIENT
  Age: 65 Year
  Sex: Female
  Weight: 129.28 kg

DRUGS (4)
  1. UNKNOWN HIGH CHOLESTEROL MEDICATION (ALL OTHER THERPEUTIC PRODUCTS) [Concomitant]
  2. ULORIC [Suspect]
     Active Substance: FEBUXOSTAT
     Indication: GOUT
     Dosage: 1/2 TAB ONCE DAILY
     Route: 048
     Dates: start: 20100323, end: 20100406
  3. INSULIN (INSULIN) [Concomitant]
     Active Substance: INSULIN NOS
  4. UNKNOWN HIGH BLOOD PRESSURE MEDICATION(ALL OTHER THERPEUTIC PRODUCTS) [Concomitant]

REACTIONS (1)
  - Abdominal pain upper [None]

NARRATIVE: CASE EVENT DATE: 20100405
